FAERS Safety Report 9681649 (Version 2)
Quarter: 2014Q1

REPORT INFORMATION
  Report Type: Report from Study
  Country: US (occurrence: US)
  Receive Date: 20131111
  Receipt Date: 20140120
  Transmission Date: 20141002
  Serious: Yes (Hospitalization, Other)
  Sender: FDA-Public Use
  Company Number: US-ABBVIE-13P-163-1165677-00

PATIENT
  Age: 62 Year
  Sex: Male
  Weight: 96.25 kg

DRUGS (12)
  1. HUMIRA [Suspect]
     Indication: CROHN^S DISEASE
     Dosage: LOADING DOSE
     Dates: start: 20130314, end: 20130314
  2. HUMIRA [Suspect]
     Dosage: SECOND DOSE
     Dates: start: 20130322, end: 20130322
  3. HUMIRA [Suspect]
     Dates: start: 20130406, end: 201306
  4. METAMUCIL [Concomitant]
     Indication: ILL-DEFINED DISORDER
  5. PRILOSEC [Concomitant]
     Indication: GASTROOESOPHAGEAL REFLUX DISEASE
  6. TOPROL [Concomitant]
     Indication: CARDIAC DISORDER
  7. LORAZEPAM [Concomitant]
     Indication: ANXIETY
  8. PREDNISONE [Concomitant]
     Indication: PRODUCT USED FOR UNKNOWN INDICATION
  9. LIADA [Concomitant]
     Indication: CROHN^S DISEASE
  10. FOLIC ACID [Concomitant]
     Indication: VITAMIN SUPPLEMENTATION
  11. SIMVASTATIN [Concomitant]
     Indication: BLOOD CHOLESTEROL INCREASED
  12. GLIPERIDE [Concomitant]
     Indication: DIABETES MELLITUS

REACTIONS (4)
  - Pouchitis [Recovered/Resolved]
  - Intestinal resection [Unknown]
  - Deep vein thrombosis [Unknown]
  - Post procedural complication [Unknown]
